FAERS Safety Report 6062584-X (Version None)
Quarter: 2009Q1

REPORT INFORMATION
  Report Type: 
  Country: None (occurrence: None)
  Receive Date: 20090129
  Receipt Date: 20090120
  Transmission Date: 20090719
  Serious: Yes (Death, Hospitalization)
  Sender: FDA-Public Use
  Company Number: GXKR2009GB00971

PATIENT
  Age: 80 Year
  Sex: Female

DRUGS (18)
  1. CEFTRIAXONE [Suspect]
     Indication: RESPIRATORY TRACT INFECTION
     Dosage: 2 G, QD; INTRAVENOUS
     Route: 042
     Dates: start: 20080925, end: 20080928
  2. CLARITHROMYCIN [Suspect]
     Indication: RESPIRATORY TRACT INFECTION
     Dosage: 500 MG, QD; ORAL
     Route: 048
     Dates: start: 20080929, end: 20081005
  3. CO-AMOXICLAV (NGX) (AMOXICILLIN, CLAVULANATE) UNKNOWN [Suspect]
     Indication: RESPIRATORY TRACT INFECTION
     Dosage: 625 MG, TID, ORAL
     Route: 048
     Dates: start: 20080929, end: 20081005
  4. CLARITHROMYCIN [Suspect]
     Indication: RESPIRATORY TRACT INFECTION
     Dosage: 500 MG, QD; INTRAVENOUS
     Route: 042
     Dates: start: 20080925, end: 20080928
  5. ADCAL-D3 (CALCIUM CARBONATE, COLECALCIFEROL) [Concomitant]
  6. IPRATROPIUM BROMIDE W/SALBUTAMOL (PRATROPIUM BROMIDE, SALBUTAMOL) [Concomitant]
  7. ENOXAPARIN SODIUM [Concomitant]
  8. FRUSEMIDE     (FUROSEMIDE) [Concomitant]
  9. FRUSEMIDE (FUROSEMIDE) [Concomitant]
  10. GLICLAZIDE (GLICLAZIDE) [Concomitant]
  11. INSULIN (INSULIN) [Concomitant]
  12. METFORMIN HCL [Concomitant]
  13. OMEPRAZOLE [Concomitant]
  14. OXYCODONE HCL [Concomitant]
  15. PREDNISOLONE [Concomitant]
  16. SALBUTAMOL (SALBUTAMOL) [Concomitant]
  17. FLUTICASONE PROPIONATE W/SALMETEROL XINAFOATE (FLUTICASONE PROPIONATE, [Concomitant]
  18. TIOTROPIUM BROMIDE (TIOTROPIUM BROMIDE) [Concomitant]

REACTIONS (3)
  - CLOSTRIDIUM DIFFICILE COLITIS [None]
  - GENERAL PHYSICAL HEALTH DETERIORATION [None]
  - RENAL FAILURE ACUTE [None]
